FAERS Safety Report 6388802-6 (Version None)
Quarter: 2009Q4

REPORT INFORMATION
  Report Type: 
  Country: None (occurrence: None)
  Receive Date: 20091005
  Receipt Date: 20090923
  Transmission Date: 20100525
  Serious: Yes (Hospitalization, Disabling)
  Sender: FDA-Public Use
  Company Number: JP-GILEAD-2008-0018359

PATIENT
  Sex: Male

DRUGS (12)
  1. VIREAD [Suspect]
     Indication: HIV INFECTION
     Route: 048
     Dates: start: 20020131, end: 20070917
  2. TRUVADA [Suspect]
     Indication: HIV INFECTION
     Route: 048
     Dates: start: 20070926
  3. KALETRA [Suspect]
     Indication: HIV INFECTION
     Route: 048
     Dates: start: 20010904, end: 20061204
  4. KALETRA [Suspect]
     Route: 048
     Dates: start: 20061205, end: 20070917
  5. KALETRA [Suspect]
     Route: 048
     Dates: start: 20070926, end: 20071012
  6. EPIVIR [Suspect]
     Indication: HIV INFECTION
     Route: 048
     Dates: start: 20050510, end: 20051109
  7. EPIVIR [Suspect]
     Route: 048
     Dates: start: 20060509, end: 20070917
  8. ZERIT [Suspect]
     Indication: HIV INFECTION
     Route: 048
     Dates: start: 20060509, end: 20070917
  9. EPZICOM [Concomitant]
     Indication: HIV INFECTION
     Route: 048
     Dates: start: 20051110, end: 20060508
  10. ZIAGEN [Concomitant]
     Indication: HIV INFECTION
     Route: 048
     Dates: start: 20010904, end: 20051109
  11. PRESISTA [Concomitant]
     Indication: HIV INFECTION
     Route: 048
     Dates: start: 20071013
  12. FUZEON [Concomitant]
     Indication: HIV INFECTION
     Route: 058
     Dates: start: 20071013, end: 20071110

REACTIONS (3)
  - AIDS ENCEPHALOPATHY [None]
  - BLOOD ALKALINE PHOSPHATASE INCREASED [None]
  - DEPRESSION [None]
